FAERS Safety Report 14726530 (Version 1)
Quarter: 2018Q2

REPORT INFORMATION
  Report Type: Spontaneous
  Country: US (occurrence: US)
  Receive Date: 20180406
  Receipt Date: 20180406
  Transmission Date: 20180711
  Serious: No
  Sender: FDA-Public Use
  Company Number: US-PFIZER INC-2018139852

PATIENT
  Age: 58 Year
  Sex: Female

DRUGS (1)
  1. METHOTREXATE SODIUM. [Suspect]
     Active Substance: METHOTREXATE SODIUM
     Dosage: 0.35 ML, UNK (EVERY 2 WEEKS ON THURSDAY AND SATURDAY)
     Route: 030

REACTIONS (3)
  - Malaise [Unknown]
  - Pain [Not Recovered/Not Resolved]
  - Anaemia [Unknown]
